FAERS Safety Report 8758319 (Version 1)
Quarter: 2012Q4

REPORT INFORMATION
  Report Type: 
  Country: IT (occurrence: IT)
  Receive Date: 20120829
  Receipt Date: 20120829
  Transmission Date: 20130627
  Serious: Yes (Hospitalization)
  Sender: FDA-Public Use
  Company Number: IT-ELI_LILLY_AND_COMPANY-IT201208005194

PATIENT
  Age: 82 Year
  Sex: Male

DRUGS (7)
  1. HUMULIN NPH [Suspect]
     Indication: DIABETES MELLITUS
     Dosage: 30 u, qd
     Dates: start: 20120101, end: 20120718
  2. TAREG [Concomitant]
     Indication: HYPERTENSION
     Dosage: 160 mg, unknown
     Dates: start: 20120101, end: 20120718
  3. ALDACTONE [Concomitant]
     Dosage: 25 mg, unknown
     Dates: start: 20120101, end: 20120718
  4. TIKLID [Concomitant]
     Indication: ANTICOAGULANT THERAPY
     Dosage: 250 mg, unknown
     Dates: start: 20120101, end: 20120718
  5. INSULIN GLARGINE [Concomitant]
     Indication: DIABETES MELLITUS
     Dosage: UNK
     Dates: start: 20120101, end: 20120717
  6. FUROSEMIDE [Concomitant]
     Indication: CARDIAC FAILURE
     Dosage: UNK
     Dates: start: 20120101, end: 20120718
  7. CARVEDILOL [Concomitant]
     Dosage: UNK
     Dates: start: 20120101, end: 20120718

REACTIONS (2)
  - Renal failure chronic [Unknown]
  - Hypoglycaemic unconsciousness [Unknown]
